FAERS Safety Report 6004678-0 (Version None)
Quarter: 2008Q4

REPORT INFORMATION
  Report Type: 
  Country: None (occurrence: None)
  Receive Date: 20081216
  Receipt Date: 20081204
  Transmission Date: 20090506
  Serious: Yes (Hospitalization)
  Sender: FDA-Public Use
  Company Number: US-SANOFI-SYNTHELABO-A03200802758

PATIENT
  Sex: Female
  Weight: 68 kg

DRUGS (17)
  1. PLAVIX [Suspect]
     Indication: STENT PLACEMENT
     Route: 048
     Dates: start: 20060417, end: 20080101
  2. PLAVIX [Suspect]
     Indication: FACTOR V LEIDEN MUTATION
     Route: 048
     Dates: start: 20060417, end: 20080101
  3. PLAVIX [Suspect]
     Indication: CEREBROVASCULAR ACCIDENT
     Route: 048
     Dates: start: 20060417, end: 20080101
  4. SALMON OIL [Concomitant]
     Indication: DRUG USE FOR UNKNOWN INDICATION
     Dosage: UNK
     Route: 048
     Dates: end: 20080101
  5. ASPIRIN [Concomitant]
     Indication: DRUG USE FOR UNKNOWN INDICATION
     Route: 048
     Dates: start: 20060417, end: 20080101
  6. TOPROL-XL [Concomitant]
     Indication: DRUG USE FOR UNKNOWN INDICATION
     Route: 048
     Dates: start: 20070901, end: 20080101
  7. CRESTOR [Concomitant]
     Indication: DRUG USE FOR UNKNOWN INDICATION
     Route: 048
     Dates: start: 20070901, end: 20080101
  8. HYDROCHLOROTHIAZIDE [Concomitant]
     Indication: DRUG USE FOR UNKNOWN INDICATION
     Route: 048
     Dates: start: 20070901, end: 20080702
  9. COZAAR [Concomitant]
     Indication: DRUG USE FOR UNKNOWN INDICATION
     Route: 048
     Dates: start: 20070901, end: 20080101
  10. NORVASC [Concomitant]
     Indication: DRUG USE FOR UNKNOWN INDICATION
     Route: 048
     Dates: start: 20070901, end: 20080101
  11. CENTRUM SILVER [Concomitant]
     Indication: DRUG USE FOR UNKNOWN INDICATION
     Dosage: UNK
     Route: 065
     Dates: start: 20070901, end: 20080101
  12. LOVAZA [Concomitant]
     Indication: DRUG USE FOR UNKNOWN INDICATION
     Dosage: UNK
     Route: 065
     Dates: start: 20070901, end: 20080101
  13. CALTRATE WITH D [Concomitant]
     Indication: DRUG USE FOR UNKNOWN INDICATION
     Dosage: UNK
     Route: 065
     Dates: start: 20070901, end: 20080101
  14. COUMADIN [Suspect]
     Indication: CEREBROVASCULAR ACCIDENT
     Dosage: 2 TABLETS IN THE MORNING AND 1 TABLET IN THE AFTERNOON
     Route: 048
     Dates: start: 20080717, end: 20080717
  15. COUMADIN [Suspect]
     Indication: FACTOR V LEIDEN MUTATION
     Dosage: 2 TABLETS IN THE MORNING AND 1 TABLET IN THE AFTERNOON
     Route: 048
     Dates: start: 20080717, end: 20080717
  16. COUMADIN [Suspect]
     Route: 048
     Dates: start: 20080401
  17. COUMADIN [Suspect]
     Route: 048
     Dates: start: 20080401

REACTIONS (11)
  - CEREBROVASCULAR ACCIDENT [None]
  - CONTUSION [None]
  - DRUG INEFFECTIVE [None]
  - DUODENAL ULCER HAEMORRHAGE [None]
  - FAECES DISCOLOURED [None]
  - HYPERTENSION [None]
  - INTERNATIONAL NORMALISED RATIO DECREASED [None]
  - MUSCLE SPASMS [None]
  - PLATELET DISORDER [None]
  - RETINAL VASCULAR THROMBOSIS [None]
  - TRANSIENT ISCHAEMIC ATTACK [None]
